FAERS Safety Report 22259037 (Version 1)
Quarter: 2023Q2

REPORT INFORMATION
  Report Type: Spontaneous
  Country: US (occurrence: US)
  Receive Date: 20230427
  Receipt Date: 20230427
  Transmission Date: 20230721
  Serious: Yes (Other)
  Sender: FDA-Public Use
  Company Number: US-Shilpa Medicare Limited-SML-US-2023-00514

PATIENT
  Age: 14 Year
  Sex: Female

DRUGS (14)
  1. AZACITIDINE [Suspect]
     Active Substance: AZACITIDINE
     Indication: Myelodysplastic syndrome
     Route: 065
  2. BASILIXIMAB [Suspect]
     Active Substance: BASILIXIMAB
     Indication: Immunosuppressant drug therapy
     Route: 065
  3. TACROLIMUS [Suspect]
     Active Substance: TACROLIMUS
     Indication: Immunosuppressant drug therapy
     Dosage: 3 AND 5 NG/ML
     Route: 065
  4. PREDNISONE [Suspect]
     Active Substance: PREDNISONE
     Indication: Immunosuppressant drug therapy
     Dosage: 0.25 MG/KG/DAY
     Route: 065
  5. CEFEPIME [Suspect]
     Active Substance: CEFEPIME HYDROCHLORIDE
     Indication: Pneumonia
     Route: 065
  6. FLUCONAZOLE [Suspect]
     Active Substance: FLUCONAZOLE
     Indication: Pneumonia
     Route: 065
  7. NITAZOXANIDE [Suspect]
     Active Substance: NITAZOXANIDE
     Indication: Cyclosporidium infection
     Route: 065
  8. DIPHENHYDRAMINE [Suspect]
     Active Substance: DIPHENHYDRAMINE
     Indication: Cyclosporidium infection
     Route: 065
  9. ALBUTEROL [Suspect]
     Active Substance: ALBUTEROL
     Indication: Cyclosporidium infection
     Route: 065
  10. EVEROLIMUS [Suspect]
     Active Substance: EVEROLIMUS
     Indication: Thrombocytopenia
     Route: 065
  11. DEXAMETHASONE [Suspect]
     Active Substance: DEXAMETHASONE
     Indication: Pancytopenia
     Dosage: 10 MG/M2  DAILY, FOR FIVE DAYS
     Route: 065
  12. ROMIPLOSTIM [Suspect]
     Active Substance: ROMIPLOSTIM
     Indication: Neutropenia
     Route: 065
  13. FILGRASTIM [Suspect]
     Active Substance: FILGRASTIM
     Indication: Neutropenia
     Route: 065
  14. FILGRASTIM [Suspect]
     Active Substance: FILGRASTIM
     Indication: Thrombocytopenia

REACTIONS (3)
  - Pyrexia [Unknown]
  - Drug ineffective [Unknown]
  - Histoplasmosis [Unknown]
